FAERS Safety Report 6634531-0 (Version None)
Quarter: 2010Q1

REPORT INFORMATION
  Report Type: 
  Country: None (occurrence: None)
  Receive Date: 20100315
  Receipt Date: 20100310
  Transmission Date: 20100710
  Serious: Yes (Other)
  Sender: FDA-Public Use
  Company Number: FR-ALLERGAN-1003263US

PATIENT

DRUGS (5)
  1. TIMOLOL MALEATE [Suspect]
     Indication: DRUG USE FOR UNKNOWN INDICATION
  2. INDOMETHACIN [Suspect]
     Indication: DRUG USE FOR UNKNOWN INDICATION
  3. DEXAMETHASONE [Suspect]
     Indication: ATOPIC KERATOCONJUNCTIVITIS
  4. TOBRAMYCIN [Suspect]
     Indication: ATOPIC KERATOCONJUNCTIVITIS
  5. ARTIFICIAL TEARS                   /90046201/ [Suspect]
     Indication: DRUG USE FOR UNKNOWN INDICATION

REACTIONS (1)
  - ULCERATIVE KERATITIS [None]
